FAERS Safety Report 21124616 (Version 1)
Quarter: 2022Q3

REPORT INFORMATION
  Report Type: Spontaneous
  Country: US (occurrence: US)
  Receive Date: 20220725
  Receipt Date: 20220725
  Transmission Date: 20221027
  Serious: No
  Sender: FDA-Public Use
  Company Number: US-GILEAD-2022-0590116

PATIENT
  Sex: Male

DRUGS (5)
  1. EPCLUSA [Suspect]
     Active Substance: SOFOSBUVIR\VELPATASVIR
     Indication: Chronic hepatitis C
     Dosage: 1 DOSAGE FORM, QD
     Route: 048
     Dates: start: 20220701
  2. GABAPENTIN [Concomitant]
     Active Substance: GABAPENTIN
  3. INSULIN ASPART [Concomitant]
     Active Substance: INSULIN ASPART
  4. TRULICITY [Concomitant]
     Active Substance: DULAGLUTIDE
  5. AMLODIPINE BESYLATE [Concomitant]
     Active Substance: AMLODIPINE BESYLATE

REACTIONS (2)
  - Nausea [Unknown]
  - Abdominal pain upper [Unknown]
